FAERS Safety Report 10078528 (Version 3)
Quarter: 2015Q4

REPORT INFORMATION
  Report Type: Spontaneous
  Country: JP (occurrence: JP)
  Receive Date: 20140415
  Receipt Date: 20151202
  Transmission Date: 20160304
  Serious: Yes (Hospitalization, Disabling)
  Sender: FDA-Public Use
  Company Number: JP-ROCHE-1383510

PATIENT
  Age: 17 Year
  Sex: Female
  Weight: 48.03 kg

DRUGS (9)
  1. SYMBICORT [Concomitant]
     Active Substance: BUDESONIDE\FORMOTEROL FUMARATE DIHYDRATE
     Route: 065
     Dates: start: 20131226
  2. ALLEGRA [Concomitant]
     Active Substance: FEXOFENADINE HYDROCHLORIDE
     Route: 065
     Dates: start: 20140121
  3. SOLU-MEDROL [Concomitant]
     Active Substance: METHYLPREDNISOLONE SODIUM SUCCINATE
     Route: 065
     Dates: start: 20140126, end: 20140127
  4. SOLU-MEDROL [Concomitant]
     Active Substance: METHYLPREDNISOLONE SODIUM SUCCINATE
     Route: 065
     Dates: start: 20140121, end: 20140125
  5. DECADRON [Concomitant]
     Active Substance: DEXAMETHASONE
     Route: 065
     Dates: start: 20140126, end: 20140126
  6. FLORID [Concomitant]
     Active Substance: MICONAZOLE
     Route: 065
     Dates: start: 20140123, end: 20140131
  7. XOLAIR [Suspect]
     Active Substance: OMALIZUMAB
     Indication: ASTHMA
     Route: 058
     Dates: start: 20140127, end: 20140127
  8. THEO-DUR [Concomitant]
     Active Substance: THEOPHYLLINE ANHYDROUS
     Route: 065
     Dates: start: 20131226
  9. THEOPHYLLINE [Concomitant]
     Active Substance: THEOPHYLLINE ANHYDROUS
     Route: 065

REACTIONS (6)
  - Oedema [Recovering/Resolving]
  - Blood triglycerides decreased [Unknown]
  - Ataxia [Recovering/Resolving]
  - Hemiplegia [Recovering/Resolving]
  - Musculoskeletal pain [Not Recovered/Not Resolved]
  - Arthralgia [Recovering/Resolving]

NARRATIVE: CASE EVENT DATE: 20140127
